FAERS Safety Report 4770376-4 (Version None)
Quarter: 2005Q3

REPORT INFORMATION
  Report Type: 
  Country: None (occurrence: None)
  Receive Date: 20050915
  Receipt Date: 20050511
  Transmission Date: 20060218
  Serious: No
  Sender: FDA-Public Use
  Company Number: US-GLAXOSMITHKLINE-A0558119A

PATIENT
  Age: 43 Year
  Sex: Male

DRUGS (1)
  1. ABREVA [Suspect]
     Dates: end: 20050511

REACTIONS (6)
  - APPLICATION SITE DISCHARGE [None]
  - APPLICATION SITE REACTION [None]
  - CHAPPED LIPS [None]
  - DRUG INEFFECTIVE [None]
  - LIP HAEMORRHAGE [None]
  - PIGMENTATION LIP [None]
